FAERS Safety Report 8058239-2 (Version None)
Quarter: 2012Q1

REPORT INFORMATION
  Report Type: 
  Country: None (occurrence: None)
  Receive Date: 20120112
  Receipt Date: 20111228
  Transmission Date: 20120608
  Serious: Yes (Hospitalization, Other)
  Sender: FDA-Public Use
  Company Number: 2011P1015263

PATIENT
  Age: 56 Year
  Sex: Female
  Weight: 54.4316 kg

DRUGS (20)
  1. FENTANYL-75 [Suspect]
     Indication: PAIN
     Dosage: 1 PATCH;EVERY 3 DAYS;TDER
     Route: 062
     Dates: start: 20110901, end: 20111213
  2. FENTANYL-75 [Suspect]
     Indication: ARTERIAL DISORDER
     Dosage: 1 PATCH;EVERY 3 DAYS;TDER
     Route: 062
     Dates: start: 20110901, end: 20111213
  3. FENTANYL-75 [Suspect]
     Indication: RADIATION INJURY
     Dosage: 1 PATCH;EVERY 3 DAYS;TDER
     Route: 062
     Dates: start: 20110901, end: 20111213
  4. FENTANYL-75 [Suspect]
     Indication: OSTEONECROSIS OF JAW
     Dosage: 1 PATCH;EVERY 3 DAYS;TDER
     Route: 062
     Dates: start: 20110901, end: 20111213
  5. FENTANYL-100 [Suspect]
     Indication: RADIATION INJURY
     Dosage: 1 PATCH;EVERY 3 DAYS;TDER
     Route: 062
     Dates: start: 20111001, end: 20111213
  6. FENTANYL-100 [Suspect]
     Indication: PAIN
     Dosage: 1 PATCH;EVERY 3 DAYS;TDER
     Route: 062
     Dates: start: 20111001, end: 20111213
  7. FENTANYL-100 [Suspect]
     Indication: OSTEONECROSIS OF JAW
     Dosage: 1 PATCH;EVERY 3 DAYS;TDER
     Route: 062
     Dates: start: 20111001, end: 20111213
  8. FENTANYL-100 [Suspect]
     Indication: ARTERIAL DISORDER
     Dosage: 1 PATCH;EVERY 3 DAYS;TDER
     Route: 062
     Dates: start: 20111001, end: 20111213
  9. UNSPECIFIED MEDICATION [Concomitant]
  10. SEROQUEL [Concomitant]
  11. FENTANYL-100 [Suspect]
     Indication: OSTEONECROSIS OF JAW
     Dosage: 1 PATCH;EVERY 3 DAYS;TDER
     Route: 062
     Dates: start: 20111213
  12. FENTANYL-100 [Suspect]
     Indication: ARTERIAL DISORDER
     Dosage: 1 PATCH;EVERY 3 DAYS;TDER
     Route: 062
     Dates: start: 20111213
  13. FENTANYL-100 [Suspect]
     Indication: RADIATION INJURY
     Dosage: 1 PATCH;EVERY 3 DAYS;TDER
     Route: 062
     Dates: start: 20111213
  14. FENTANYL-100 [Suspect]
     Indication: PAIN
     Dosage: 1 PATCH;EVERY 3 DAYS;TDER
     Route: 062
     Dates: start: 20111213
  15. FENTANYL-12 [Suspect]
     Indication: PAIN
     Dosage: 1 PATCH;EVERY 3 DAYS;TDER
     Route: 062
     Dates: start: 20111001, end: 20111213
  16. FENTANYL-12 [Suspect]
     Indication: RADIATION INJURY
     Dosage: 1 PATCH;EVERY 3 DAYS;TDER
     Route: 062
     Dates: start: 20111001, end: 20111213
  17. FENTANYL-12 [Suspect]
     Indication: OSTEONECROSIS OF JAW
     Dosage: 1 PATCH;EVERY 3 DAYS;TDER
     Route: 062
     Dates: start: 20111001, end: 20111213
  18. FENTANYL-12 [Suspect]
     Indication: ARTERIAL DISORDER
     Dosage: 1 PATCH;EVERY 3 DAYS;TDER
     Route: 062
     Dates: start: 20111001, end: 20111213
  19. HYDROMORPHONE HCL [Concomitant]
  20. BLOOD PRESSURE MEDICATIONS (UNSPECIFIED) [Concomitant]

REACTIONS (6)
  - PRODUCT ADHESION ISSUE [None]
  - INADEQUATE ANALGESIA [None]
  - PRODUCT SUBSTITUTION ISSUE [None]
  - BREAKTHROUGH PAIN [None]
  - PRODUCT PHYSICAL ISSUE [None]
  - CEREBROVASCULAR ACCIDENT [None]
